FAERS Safety Report 8112283-5 (Version None)
Quarter: 2012Q1

REPORT INFORMATION
  Report Type: 
  Country: None (occurrence: None)
  Receive Date: 20120203
  Receipt Date: 20120203
  Transmission Date: 20120608
  Serious: Yes (Hospitalization)
  Sender: FDA-Public Use
  Company Number: None

PATIENT
  Sex: Male
  Weight: 92.986 kg

DRUGS (3)
  1. AZITHROMYCIN [Suspect]
     Indication: SINUSITIS
     Dosage: 2TEASPOONS FIRST DAY THEN 1TSP
     Route: 048
     Dates: start: 20111018, end: 20111023
  2. AZITHROMYCIN [Concomitant]
     Indication: EAR INFECTION
     Dosage: 2TEASPOONS FIRST DAY THEN 1TSP
     Route: 048
     Dates: start: 20111208, end: 20111212
  3. ZYRTEC [Concomitant]

REACTIONS (11)
  - REFUSAL OF TREATMENT BY RELATIVE [None]
  - FATIGUE [None]
  - HALLUCINATION, AUDITORY [None]
  - HYPOPHAGIA [None]
  - DEHYDRATION [None]
  - DEPRESSION [None]
  - OVERDOSE [None]
  - DISORIENTATION [None]
  - SOMNOLENCE [None]
  - CONFUSIONAL STATE [None]
  - DELIRIUM [None]
